FAERS Safety Report 20932296 (Version 1)
Quarter: 2022Q2

REPORT INFORMATION
  Report Type: Spontaneous
  Country: BR (occurrence: BR)
  Receive Date: 20220608
  Receipt Date: 20220608
  Transmission Date: 20220721
  Serious: Yes (Other)
  Sender: FDA-Public Use
  Company Number: BR-NOVARTISPH-NVSC2022BR129182

PATIENT
  Sex: Female

DRUGS (2)
  1. TRILEPTAL [Suspect]
     Active Substance: OXCARBAZEPINE
     Indication: Product used for unknown indication
     Dosage: 600 MG
     Route: 065
  2. TRILEPTAL [Suspect]
     Active Substance: OXCARBAZEPINE
     Dosage: 300 MG
     Route: 065
     Dates: start: 2015

REACTIONS (14)
  - Paralysis [Unknown]
  - Seizure [Unknown]
  - Mobility decreased [Unknown]
  - Blister [Unknown]
  - Hypersensitivity [Unknown]
  - Lip swelling [Recovered/Resolved]
  - Eye swelling [Not Recovered/Not Resolved]
  - Swelling face [Not Recovered/Not Resolved]
  - Eye irritation [Unknown]
  - Rhinitis [Recovered/Resolved]
  - Erythema [Not Recovered/Not Resolved]
  - Burning sensation [Unknown]
  - Sinonasal obstruction [Unknown]
  - Wrong technique in product usage process [Unknown]

NARRATIVE: CASE EVENT DATE: 20150101
